FAERS Safety Report 9052060 (Version 1)
Quarter: 2013Q1

REPORT INFORMATION
  Report Type: Spontaneous
  Country: JP (occurrence: JP)
  Receive Date: 20130207
  Receipt Date: 20130207
  Transmission Date: 20140127
  Serious: Yes (Other)
  Sender: FDA-Public Use
  Company Number: JP-JNJFOC-20130110107

PATIENT
  Sex: 0

DRUGS (2)
  1. INFLIXIMAB, RECOMBINANT [Suspect]
     Indication: KAWASAKI^S DISEASE
     Route: 042
  2. IMMUNOGLOBULIN [Suspect]
     Indication: KAWASAKI^S DISEASE
     Route: 042

REACTIONS (1)
  - Coronary artery disease [Unknown]
